FAERS Safety Report 12852237 (Version 1)
Quarter: 2016Q4

REPORT INFORMATION
  Report Type: Report from Study
  Country: ES (occurrence: ES)
  Receive Date: 20161017
  Receipt Date: 20161017
  Transmission Date: 20170207
  Serious: Yes (Other)
  Sender: FDA-Public Use
  Company Number: ES-CELGENEUS-ESP-2016100522

PATIENT
  Age: 33 Year
  Sex: Female
  Weight: 64 kg

DRUGS (9)
  1. MASTICAL D [Concomitant]
     Indication: PATHOLOGICAL FRACTURE
     Route: 048
     Dates: end: 20150519
  2. ARANESP [Concomitant]
     Active Substance: DARBEPOETIN ALFA
     Indication: ANAEMIA
     Route: 065
     Dates: start: 20150324
  3. ZARZIO [Concomitant]
     Active Substance: FILGRASTIM
     Indication: PROPHYLAXIS
     Dosage: 30 MU
     Route: 065
     Dates: start: 20150324, end: 20150327
  4. ZARZIO [Concomitant]
     Active Substance: FILGRASTIM
     Dosage: 30 MU
     Route: 065
     Dates: start: 20150421
  5. DIAZEPAM. [Concomitant]
     Active Substance: DIAZEPAM
     Indication: INSOMNIA
  6. ORFIDAL [Concomitant]
     Active Substance: LORAZEPAM
     Indication: PROPHYLAXIS
     Route: 048
  7. DIAZEPAM. [Concomitant]
     Active Substance: DIAZEPAM
     Indication: DEPRESSED MOOD
     Route: 048
     Dates: start: 20150505, end: 20160223
  8. ABRAXANE [Suspect]
     Active Substance: PACLITAXEL
     Indication: BREAST CANCER METASTATIC
     Route: 041
     Dates: start: 20150210, end: 20160216
  9. FERINJECT [Concomitant]
     Active Substance: FERRIC CARBOXYMALTOSE
     Indication: NEUTROPENIA
     Route: 041
     Dates: start: 20150324, end: 20150324

REACTIONS (3)
  - Neuropathy peripheral [Recovered/Resolved]
  - Palmar-plantar erythrodysaesthesia syndrome [Not Recovered/Not Resolved]
  - Nausea [Recovered/Resolved]

NARRATIVE: CASE EVENT DATE: 20151215
